FAERS Safety Report 11719387 (Version 1)
Quarter: 2015Q4

REPORT INFORMATION
  Report Type: Spontaneous
  Country: DK (occurrence: DK)
  Receive Date: 20151110
  Receipt Date: 20151110
  Transmission Date: 20160304
  Serious: Yes (Other)
  Sender: FDA-Public Use
  Company Number: DK-MYLANLABS-2015M1038579

PATIENT

DRUGS (3)
  1. METHADONE [Suspect]
     Active Substance: METHADONE HYDROCHLORIDE
     Dosage: 1560 MG/DAY (47.5 MG/KG/DAY)
     Route: 042
  2. FENTANYL HAMELN [Concomitant]
     Indication: PAIN
     Route: 042
  3. METHADONE [Suspect]
     Active Substance: METHADONE HYDROCHLORIDE
     Indication: PAIN
     Dosage: 860 MG/DAY AND THEN INCREASED TO 1560MG/DAY
     Route: 042

REACTIONS (1)
  - Hypoglycaemia [Recovered/Resolved]
